FAERS Safety Report 16057970 (Version 4)
Quarter: 2019Q2

REPORT INFORMATION
  Report Type: Spontaneous
  Country: JP (occurrence: JP)
  Receive Date: 20190311
  Receipt Date: 20190516
  Transmission Date: 20190711
  Serious: Yes (Hospitalization, Other)
  Sender: FDA-Public Use
  Company Number: JP-009507513-1902JPN000562J

PATIENT
  Age: 51 Year
  Sex: Male
  Weight: 46 kg

DRUGS (8)
  1. CARBOPLATIN. [Suspect]
     Active Substance: CARBOPLATIN
     Dosage: 364.8 MILLIGRAM, EVERY 4 WEEKS
     Route: 041
     Dates: start: 20190307, end: 20190307
  2. ALOXI [Concomitant]
     Active Substance: PALONOSETRON HYDROCHLORIDE
     Indication: PROPHYLAXIS
     Dosage: 0.75 MILLIGRAM, ONCE
     Route: 042
     Dates: start: 20190117, end: 20190117
  3. CARBOPLATIN. [Suspect]
     Active Substance: CARBOPLATIN
     Indication: NON-SMALL CELL LUNG CANCER
     Dosage: 415 MILLIGRAM, EVERY 4 WEEKS
     Route: 041
     Dates: start: 20190117, end: 20190117
  4. DEXART [Concomitant]
     Active Substance: DEXAMETHASONE SODIUM PHOSPHATE
     Indication: PROPHYLAXIS
     Dosage: 6.6 MILLIGRAM, ONCE
     Route: 042
     Dates: start: 20190117, end: 20190117
  5. EMEND [Concomitant]
     Active Substance: APREPITANT
     Indication: PROPHYLAXIS
     Dosage: UNK
     Route: 048
     Dates: start: 20190117, end: 20190119
  6. ABRAXANE [Suspect]
     Active Substance: PACLITAXEL
     Dosage: 116.24 MILLIGRAM, QW
     Route: 041
     Dates: start: 20190307, end: 20190324
  7. KEYTRUDA [Suspect]
     Active Substance: PEMBROLIZUMAB
     Indication: NON-SMALL CELL LUNG CANCER
     Dosage: 200 MILLIGRAM, Q3W
     Route: 041
     Dates: start: 20190117, end: 20190117
  8. ABRAXANE [Suspect]
     Active Substance: PACLITAXEL
     Indication: NON-SMALL CELL LUNG CANCER
     Dosage: 150.6 MILLIGRAM, QW
     Route: 041
     Dates: start: 20190117, end: 20190124

REACTIONS (3)
  - Pyrexia [Recovered/Resolved]
  - Autoimmune colitis [Recovering/Resolving]
  - Anal incontinence [Unknown]

NARRATIVE: CASE EVENT DATE: 201901
